FAERS Safety Report 9945440 (Version 1)
Quarter: 2014Q1

REPORT INFORMATION
  Report Type: Report from Study
  Country: US (occurrence: US)
  Receive Date: 20140303
  Receipt Date: 20140303
  Transmission Date: 20141002
  Serious: No
  Sender: FDA-Public Use
  Company Number: US-ABBVIE-13P-163-1053588-00

PATIENT
  Age: 36 Year
  Sex: Female

DRUGS (8)
  1. HUMIRA [Suspect]
     Indication: PSORIATIC ARTHROPATHY
     Dates: start: 20121228
  2. NAPROXEN [Concomitant]
     Indication: PAIN
  3. SPIRONOLACTONE [Concomitant]
     Indication: HYPERTENSION
  4. VITAMIN C [Concomitant]
     Indication: SUPPLEMENTATION THERAPY
  5. FOLBEE [Concomitant]
     Indication: SUPPLEMENTATION THERAPY
  6. OMEGA 3 [Concomitant]
     Indication: SUPPLEMENTATION THERAPY
  7. ZINC [Concomitant]
     Indication: SUPPLEMENTATION THERAPY
  8. POTASSIUM GLUCONATE [Concomitant]
     Indication: VITAMIN SUPPLEMENTATION

REACTIONS (2)
  - Bronchitis [Recovered/Resolved]
  - Injection site bruising [Recovered/Resolved]
